FAERS Safety Report 8976941 (Version 2)
Quarter: 2013Q3

REPORT INFORMATION
  Report Type: Spontaneous
  Country: CA (occurrence: CA)
  Receive Date: 20121220
  Receipt Date: 20130703
  Transmission Date: 20140515
  Serious: Yes (Other)
  Sender: FDA-Public Use
  Company Number: CA-UCBSA-073468

PATIENT
  Sex: 0

DRUGS (1)
  1. KEPPRA [Suspect]
     Dosage: UNKNOWN DOSE

REACTIONS (1)
  - Thrombocytopenia [Unknown]
